FAERS Safety Report 13702417 (Version 1)
Quarter: 2017Q2

REPORT INFORMATION
  Report Type: Report from Study
  Country: US (occurrence: US)
  Receive Date: 20170629
  Receipt Date: 20170629
  Transmission Date: 20170830
  Serious: No
  Sender: FDA-Public Use
  Company Number: US-IPSEN BIOPHARMACEUTICALS, INC.-2015-7634

PATIENT
  Sex: Male

DRUGS (8)
  1. MULTI VITAMIN [Concomitant]
     Active Substance: VITAMINS
  2. INCRELEX [Suspect]
     Active Substance: MECASERMIN
     Indication: BODY HEIGHT BELOW NORMAL
     Dosage: 0.16 UNITS NOT REPORTED
     Route: 058
     Dates: start: 201509, end: 20151011
  3. INCRELEX [Suspect]
     Active Substance: MECASERMIN
     Indication: PRODUCT USE IN UNAPPROVED INDICATION
  4. INCRELEX [Suspect]
     Active Substance: MECASERMIN
     Indication: GROWTH HORMONE DEFICIENCY
     Dosage: 0.8 UNITS NOT REPORTED
     Route: 058
     Dates: start: 201508, end: 201509
  5. INCRELEX [Suspect]
     Active Substance: MECASERMIN
     Indication: DWARFISM
  6. VITAMIN D [Concomitant]
     Active Substance: CHOLECALCIFEROL
  7. DEPAKOTE [Concomitant]
     Active Substance: DIVALPROEX SODIUM
     Indication: PRODUCT USED FOR UNKNOWN INDICATION
     Dosage: NOT REPORTED
     Route: 065
  8. ADDERALL [Concomitant]
     Active Substance: AMPHETAMINE ASPARTATE\AMPHETAMINE SULFATE\DEXTROAMPHETAMINE SACCHARATE\DEXTROAMPHETAMINE SULFATE

REACTIONS (5)
  - Increased appetite [None]
  - Injection site pain [None]
  - Tremor [None]
  - Blood glucose decreased [None]
  - Pharyngitis streptococcal [None]

NARRATIVE: CASE EVENT DATE: 2015
